FAERS Safety Report 23515775 (Version 2)
Quarter: 2024Q1

REPORT INFORMATION
  Report Type: Spontaneous
  Country: US (occurrence: US)
  Receive Date: 20240213
  Receipt Date: 20240308
  Transmission Date: 20240410
  Serious: No
  Sender: FDA-Public Use
  Company Number: US-GSK-US2024017797

PATIENT
  Sex: Female

DRUGS (2)
  1. ANORO ELLIPTA [Suspect]
     Active Substance: UMECLIDINIUM BROMIDE\VILANTEROL TRIFENATATE
     Indication: Chronic obstructive pulmonary disease
     Dosage: 62.5/25MCG , QD
     Route: 055
     Dates: start: 202401, end: 202402
  2. TRELEGY ELLIPTA [Suspect]
     Active Substance: FLUTICASONE FUROATE\UMECLIDINIUM BROMIDE\VILANTEROL TRIFENATATE
     Indication: Chronic obstructive pulmonary disease
     Dosage: UNK, 200/62.5/25MCG
     Route: 055
     Dates: start: 202312, end: 202312

REACTIONS (9)
  - Dyspnoea exertional [Unknown]
  - Anxiety [Unknown]
  - Insomnia [Unknown]
  - Muscle spasms [Unknown]
  - Weight increased [Unknown]
  - Hunger [Unknown]
  - Chest pain [Unknown]
  - Vision blurred [Unknown]
  - Feeling hot [Unknown]
